FAERS Safety Report 4340653-X (Version None)
Quarter: 2004Q2

REPORT INFORMATION
  Report Type: 
  Country: None (occurrence: None)
  Receive Date: 20040414
  Receipt Date: 20040401
  Transmission Date: 20050107
  Serious: Yes (Hospitalization)
  Sender: FDA-Public Use
  Company Number: HQWYE314201APR04

PATIENT
  Age: 65 Year
  Sex: Male

DRUGS (13)
  1. CORDAREX (AMIODARONE, TABLET) [Suspect]
     Indication: ATRIAL FIBRILLATION
     Dosage: 200 MG 1X PER 1 DAY; ORAL
     Route: 048
     Dates: start: 20030601, end: 20030924
  2. DIGITOXIN TAB [Suspect]
     Indication: ATRIAL FIBRILLATION
     Dosage: 0.07 MG 5X PER 1WK; ORAL
     Route: 048
     Dates: start: 19920101, end: 20030920
  3. NITRANGIN (GLYCERYL TRINITRATE, ) [Suspect]
     Indication: CORONARY ARTERY DISEASE
     Dosage: 0.4MG, AS NEEDED
     Route: 060
  4. AUAPHOR (XIPAMIDE) [Concomitant]
  5. BERODUAL (FENOTEROL HYDROBROMIDE/IPRATROPIUM BROMIDE) [Concomitant]
  6. ISCOVER (CLOPIDOGREL SULFATE) [Concomitant]
  7. SPIRONOLACTONE [Concomitant]
  8. METOCLOPRAMIDE [Concomitant]
  9. PANTOZOL (PANTOPRAZOLE SODIUM) [Concomitant]
  10. ATORVASTATIN CALCIUM [Concomitant]
  11. TOREM (TORASEMIDE) [Concomitant]
  12. ULCOGANT (SUCRALFATE) [Concomitant]
  13. RAMIPRIL [Concomitant]

REACTIONS (10)
  - ATRIOVENTRICULAR BLOCK COMPLETE [None]
  - ATRIOVENTRICULAR BLOCK FIRST DEGREE [None]
  - BLOOD CREATININE INCREASED [None]
  - BLOOD UREA INCREASED [None]
  - BUNDLE BRANCH BLOCK LEFT [None]
  - DIZZINESS [None]
  - HYPOTHYROIDISM [None]
  - MITRAL VALVE INCOMPETENCE [None]
  - NODAL RHYTHM [None]
  - VENTRICULAR HYPERTROPHY [None]
